FAERS Safety Report 7730309-5 (Version None)
Quarter: 2011Q3

REPORT INFORMATION
  Report Type: 
  Country: None (occurrence: None)
  Receive Date: 20110906
  Receipt Date: 20110822
  Transmission Date: 20111222
  Serious: Yes (Other)
  Sender: FDA-Public Use
  Company Number: PHHY2011GB76869

PATIENT
  Sex: Male
  Weight: 0.94 kg

DRUGS (2)
  1. METYRAPONE [Suspect]
     Route: 064
  2. INSULIN [Concomitant]
     Dosage: UNK UKN, UNK
     Route: 064

REACTIONS (3)
  - FOETAL HEART RATE ABNORMAL [None]
  - TRACHEOMALACIA [None]
  - MATERNAL EXPOSURE DURING PREGNANCY [None]
